FAERS Safety Report 6536658-0 (Version None)
Quarter: 2010Q1

REPORT INFORMATION
  Report Type: 
  Country: None (occurrence: None)
  Receive Date: 20100113
  Receipt Date: 20100104
  Transmission Date: 20100710
  Serious: Yes (Death)
  Sender: FDA-Public Use
  Company Number: US-PFIZER INC-2010001570

PATIENT
  Age: 19 Year
  Sex: Female

DRUGS (5)
  1. ALPRAZOLAM [Suspect]
  2. CITALOPRAM [Suspect]
  3. ACETAMINOPHEN [Suspect]
  4. OXYCODONE [Suspect]
  5. MARIJUANA [Suspect]

REACTIONS (3)
  - ACCIDENTAL EXPOSURE [None]
  - CARDIAC ARREST [None]
  - RESPIRATORY ARREST [None]
